FAERS Safety Report 4655478-5 (Version None)
Quarter: 2005Q2

REPORT INFORMATION
  Report Type: 
  Country: None (occurrence: None)
  Receive Date: 20050505
  Receipt Date: 20050420
  Transmission Date: 20051028
  Serious: Yes (Hospitalization)
  Sender: FDA-Public Use
  Company Number: 2005BI008135

PATIENT
  Age: 49 Year
  Sex: Female

DRUGS (2)
  1. AVONEX [Suspect]
     Indication: MULTIPLE SCLEROSIS
     Dosage: 30 UG; QW; IM
     Route: 030
     Dates: start: 20010201, end: 20030830
  2. AVONEX [Suspect]
     Dosage: 30 MCG; QW; IM
     Route: 030
     Dates: start: 20030907

REACTIONS (2)
  - ARTHROPATHY [None]
  - MUSCLE ATROPHY [None]
